FAERS Safety Report 23921004 (Version 1)
Quarter: 2024Q2

REPORT INFORMATION
  Report Type: Spontaneous
  Country: US (occurrence: None)
  Receive Date: 20240529
  Receipt Date: 20240529
  Transmission Date: 20240716
  Serious: No
  Sender: FDA-Public Use
  Company Number: None

PATIENT
  Age: 62 Year
  Sex: Female

DRUGS (5)
  1. ZEPBOUND [Suspect]
     Active Substance: TIRZEPATIDE
     Indication: Weight decreased
     Dates: start: 20240523
  2. JARDIANCE [Concomitant]
     Active Substance: EMPAGLIFLOZIN
  3. aldactone [Concomitant]
  4. LASIX [Concomitant]
     Active Substance: FUROSEMIDE
  5. METOPROLOL [Concomitant]
     Active Substance: METOPROLOL

REACTIONS (7)
  - Fatigue [None]
  - Abdominal pain upper [None]
  - Diarrhoea [None]
  - Arthralgia [None]
  - Back pain [None]
  - Arthralgia [None]
  - Arthralgia [None]

NARRATIVE: CASE EVENT DATE: 20240524
